FAERS Safety Report 4452816-3 (Version None)
Quarter: 2004Q3

REPORT INFORMATION
  Report Type: 
  Country: None (occurrence: None)
  Receive Date: 20040813
  Receipt Date: 20040506
  Transmission Date: 20050211
  Serious: No
  Sender: FDA-Public Use
  Company Number: S04-USA-03136-01

PATIENT
  Sex: Male

DRUGS (6)
  1. NAMENDA [Suspect]
  2. DARVOCET [Concomitant]
  3. VIOXX [Concomitant]
  4. TRIAMTERENE [Concomitant]
  5. LUPRON [Concomitant]
  6. GAS-X WITH MAALOX [Concomitant]

REACTIONS (1)
  - DIARRHOEA [None]
